FAERS Safety Report 11806376 (Version 1)
Quarter: 2015Q4

REPORT INFORMATION
  Report Type: Report from Study
  Country: BR (occurrence: BR)
  Receive Date: 20151207
  Receipt Date: 20151207
  Transmission Date: 20160305
  Serious: Yes (Death, Other)
  Sender: FDA-Public Use
  Company Number: PHHY2015BR159495

PATIENT
  Sex: Female
  Weight: 90 kg

DRUGS (1)
  1. ACLASTA [Suspect]
     Active Substance: ZOLEDRONIC ACID
     Indication: OSTEOPOROSIS
     Dosage: 5 MG, UNK
     Route: 042
     Dates: start: 2013

REACTIONS (4)
  - Death [Fatal]
  - Pneumonia [Unknown]
  - Dementia Alzheimer^s type [Unknown]
  - Diabetes mellitus [Unknown]
